FAERS Safety Report 13518262 (Version 4)
Quarter: 2017Q4

REPORT INFORMATION
  Report Type: Spontaneous
  Country: JP (occurrence: JP)
  Receive Date: 20170505
  Receipt Date: 20171102
  Transmission Date: 20180320
  Serious: Yes (Death, Hospitalization, Other)
  Sender: FDA-Public Use
  Company Number: JP-ASTELLAS-2017JP007919AA

PATIENT
  Age: 70 Year
  Sex: Male
  Weight: 55 kg

DRUGS (7)
  1. MOSAPRIDE CITRATE [Concomitant]
     Active Substance: MOSAPRIDE CITRATE
     Indication: CHRONIC GASTRITIS
     Route: 048
     Dates: end: 201705
  2. XTANDI [Suspect]
     Active Substance: ENZALUTAMIDE
     Indication: HORMONE-REFRACTORY PROSTATE CANCER
     Route: 048
     Dates: start: 20170302, end: 20170428
  3. ZOLADEX LA [Concomitant]
     Active Substance: GOSERELIN ACETATE
     Indication: HORMONE-REFRACTORY PROSTATE CANCER
     Dosage: 10.8 MG, EVERY 3 MONTHS
     Route: 058
     Dates: start: 20131129, end: 20170120
  4. AMLODIPINE BESILATE W/ATORVASTATIN CALCIUM [Concomitant]
     Indication: HYPERTENSION
     Route: 048
     Dates: end: 201705
  5. KARY UNI                           /00528801/ [Concomitant]
     Active Substance: PIRENOXINE
     Indication: CATARACT
     Dosage: UNK UNK, THRICE DAILY
     Route: 031
     Dates: end: 201705
  6. SODIUM RABEPRAZOLE [Concomitant]
     Active Substance: RABEPRAZOLE SODIUM
     Indication: CHRONIC GASTRITIS
     Route: 048
     Dates: end: 201705
  7. MAGNESIUM OXIDE. [Concomitant]
     Active Substance: MAGNESIUM OXIDE
     Indication: CONSTIPATION
     Route: 048
     Dates: end: 201705

REACTIONS (1)
  - Interstitial lung disease [Fatal]

NARRATIVE: CASE EVENT DATE: 20170420
